FAERS Safety Report 15981034 (Version 2)
Quarter: 2019Q1

REPORT INFORMATION
  Report Type: Spontaneous
  Country: US (occurrence: US)
  Receive Date: 20190219
  Receipt Date: 20190228
  Transmission Date: 20190418
  Serious: No
  Sender: FDA-Public Use
  Company Number: US-VERTEX PHARMACEUTICALS-2019-001361

PATIENT
  Age: 41 Year
  Sex: Female

DRUGS (3)
  1. SYMDEKO [Suspect]
     Active Substance: IVACAFTOR\TEZACAFTOR
     Indication: CYSTIC FIBROSIS
     Dosage: 1 DOSAGE FORM, BID
     Route: 048
     Dates: start: 201803
  2. PULMOZYME [Concomitant]
     Active Substance: DORNASE ALFA
     Dosage: 2.5 MILLILITER, QD
     Route: 055
  3. TOBI [Concomitant]
     Active Substance: TOBRAMYCIN
     Dosage: 4 CAPSULES TWICE A DAY FOR 28 DAYS, EVERY OTHER MONTH
     Route: 055

REACTIONS (1)
  - Respiratory tract infection [Not Recovered/Not Resolved]

NARRATIVE: CASE EVENT DATE: 20190202
